FAERS Safety Report 5926212-3 (Version None)
Quarter: 2008Q4

REPORT INFORMATION
  Report Type: 
  Country: None (occurrence: None)
  Receive Date: 20081017
  Receipt Date: 20081002
  Transmission Date: 20090506
  Serious: Yes (Disabling)
  Sender: FDA-Public Use
  Company Number: 2008MB000097

PATIENT
  Age: 34 Year
  Sex: Female
  Weight: 52.1637 kg

DRUGS (3)
  1. KEFLEX [Suspect]
     Indication: RESPIRATORY TRACT INFECTION
     Dosage: 500 MG; BID; PO
     Route: 048
     Dates: start: 19940101, end: 19940101
  2. PREMARIN [Concomitant]
  3. PROVENTIL /00139501/ [Concomitant]

REACTIONS (3)
  - HYPERSENSITIVITY [None]
  - IMMOBILE [None]
  - RHEUMATOID ARTHRITIS [None]
